FAERS Safety Report 4388314-5 (Version None)
Quarter: 2004Q2

REPORT INFORMATION
  Report Type: 
  Country: None (occurrence: None)
  Receive Date: 20040625
  Receipt Date: 20040617
  Transmission Date: 20050107
  Serious: Yes (Death)
  Sender: FDA-Public Use
  Company Number: F01200401513

PATIENT
  Age: 62 Year
  Sex: Male

DRUGS (2)
  1. (FONDAPURINOX SODIUM) - SOLUTION - UNIT DOSE : UNKNOWN [Suspect]
     Indication: ORTHOPEDIC PROCEDURE
     Dosage: 2.5 MG
     Route: 058
     Dates: start: 20040402
  2. TENOXICAM [Concomitant]

REACTIONS (2)
  - MULTI-ORGAN FAILURE [None]
  - UPPER GASTROINTESTINAL HAEMORRHAGE [None]
